FAERS Safety Report 8425736 (Version 6)
Quarter: 2013Q3

REPORT INFORMATION
  Report Type: Report from Study
  Country: US (occurrence: US)
  Receive Date: 20120224
  Receipt Date: 20130710
  Transmission Date: 20140515
  Serious: Yes (Hospitalization)
  Sender: FDA-Public Use
  Company Number: US-JNJFOC-20120209132

PATIENT
  Age: 13 Year
  Sex: Female
  Weight: 42.3 kg

DRUGS (4)
  1. REMICADE [Suspect]
     Indication: CROHN^S DISEASE
     Route: 042
     Dates: start: 20090207, end: 20101208
  2. HUMIRA [Concomitant]
     Route: 065
     Dates: start: 20101203
  3. 5-ASA [Concomitant]
     Route: 048
  4. ANTIBIOTICS [Concomitant]
     Indication: INFLAMMATORY BOWEL DISEASE

REACTIONS (1)
  - Crohn^s disease [Recovered/Resolved]
